FAERS Safety Report 14202475 (Version 2)
Quarter: 2018Q1

REPORT INFORMATION
  Report Type: Spontaneous
  Country: US (occurrence: US)
  Receive Date: 20171117
  Receipt Date: 20180103
  Transmission Date: 20180508
  Serious: No
  Sender: FDA-Public Use
  Company Number: US-BAUSCH-BL-2017-021660

PATIENT
  Sex: Male

DRUGS (3)
  1. XENAZINE [Suspect]
     Active Substance: TETRABENAZINE
     Route: 048
     Dates: start: 201707
  2. XENAZINE [Suspect]
     Active Substance: TETRABENAZINE
     Indication: TOURETTE^S DISORDER
     Route: 065
     Dates: start: 2012
  3. TETRABENAZINE. [Suspect]
     Active Substance: TETRABENAZINE
     Indication: TOURETTE^S DISORDER
     Route: 048
     Dates: start: 201701, end: 201706

REACTIONS (5)
  - Drug dose omission [Unknown]
  - Tourette^s disorder [Not Recovered/Not Resolved]
  - Off label use [Not Recovered/Not Resolved]
  - Drug dispensing error [Unknown]
  - Condition aggravated [Not Recovered/Not Resolved]

NARRATIVE: CASE EVENT DATE: 2012
